FAERS Safety Report 5747580-1 (Version None)
Quarter: 2008Q2

REPORT INFORMATION
  Report Type: 
  Country: None (occurrence: None)
  Receive Date: 20080523
  Receipt Date: 20080514
  Transmission Date: 20081010
  Serious: Yes (Other)
  Sender: FDA-Public Use
  Company Number: US-WYE-H04144308

PATIENT
  Age: 58 Year
  Sex: Female

DRUGS (8)
  1. ROBITUSSIN COUGH DROPS [Suspect]
     Indication: NERVOUSNESS
     Dosage: 1 TO 10 LOZENGERS DAILY
     Route: 048
     Dates: start: 19980101
  2. TORSEMIDE [Concomitant]
     Indication: HYPERTENSION
     Dosage: UNKNOWN
     Route: 065
  3. LYRICA [Concomitant]
     Indication: NEUROPATHY PERIPHERAL
     Dosage: UNKNOWN
     Route: 065
  4. INSULIN [Concomitant]
     Indication: DIABETES MELLITUS
     Dosage: UNKNOWN
     Route: 065
  5. SYNTHROID [Concomitant]
     Indication: THYROID DISORDER
     Dosage: UNKNOWN
     Route: 065
  6. PAMELOR [Concomitant]
     Indication: NEUROPATHY PERIPHERAL
     Dosage: UNKNOWN
     Route: 065
  7. COREG [Concomitant]
     Indication: HYPERTENSION
     Dosage: UNKNOWN
     Route: 065
  8. MICRO-K [Concomitant]
     Dosage: UNKNOWN
     Route: 065

REACTIONS (3)
  - CARDIAC FAILURE CONGESTIVE [None]
  - DRUG DEPENDENCE [None]
  - THERAPEUTIC RESPONSE UNEXPECTED [None]
